FAERS Safety Report 8493813-0 (Version None)
Quarter: 2012Q3

REPORT INFORMATION
  Report Type: 
  Country: None (occurrence: None)
  Receive Date: 20120706
  Receipt Date: 20120607
  Transmission Date: 20120928
  Serious: Yes (Hospitalization)
  Sender: FDA-Public Use
  Company Number: GB-BAXTER-2012BAX004210

PATIENT
  Sex: Female

DRUGS (4)
  1. DIANEAL [Suspect]
     Route: 033
  2. DIANEAL [Suspect]
  3. EXTRANEAL [Suspect]
  4. EXTRANEAL [Suspect]
     Route: 033

REACTIONS (3)
  - PYREXIA [None]
  - NONINFECTIOUS PERITONITIS [None]
  - PERITONITIS BACTERIAL [None]
